FAERS Safety Report 10982302 (Version 1)
Quarter: 2015Q2

REPORT INFORMATION
  Report Type: Spontaneous
  Country: US (occurrence: None)
  Receive Date: 20150401
  Receipt Date: 20150401
  Transmission Date: 20150821
  Serious: Yes (Hospitalization)
  Sender: FDA-Public Use
  Company Number: None

PATIENT
  Age: 66 Year
  Sex: Female
  Weight: 63.1 kg

DRUGS (2)
  1. AVASTIN [Suspect]
     Active Substance: BEVACIZUMAB
     Indication: NON-SMALL CELL LUNG CANCER
     Dosage: Q 21 DAYS
     Route: 042
     Dates: start: 20140210
  2. TARCEVA [Suspect]
     Active Substance: ERLOTINIB HYDROCHLORIDE
     Indication: NON-SMALL CELL LUNG CANCER
     Dosage: 150 MG/1PILL
     Route: 048
     Dates: start: 20140210, end: 20150318

REACTIONS (2)
  - Ophthalmic herpes zoster [None]
  - Herpes zoster [None]

NARRATIVE: CASE EVENT DATE: 20150318
